FAERS Safety Report 13061943 (Version 1)
Quarter: 2016Q4

REPORT INFORMATION
  Report Type: Spontaneous
  Country: US (occurrence: US)
  Receive Date: 20161226
  Receipt Date: 20161226
  Transmission Date: 20170207
  Serious: Yes (Other)
  Sender: FDA-Public Use
  Company Number: US-AMGEN-USASP2016180264

PATIENT
  Age: 68 Year
  Sex: Female

DRUGS (1)
  1. REPATHA [Suspect]
     Active Substance: EVOLOCUMAB
     Indication: PRODUCT USED FOR UNKNOWN INDICATION
     Dosage: UNK
     Route: 065
     Dates: start: 20161212

REACTIONS (4)
  - Rectal haemorrhage [Unknown]
  - Constipation [Not Recovered/Not Resolved]
  - Haemorrhoids [Unknown]
  - Pain [Unknown]

NARRATIVE: CASE EVENT DATE: 201612
